FAERS Safety Report 15344322 (Version 1)
Quarter: 2018Q3

REPORT INFORMATION
  Report Type: Spontaneous
  Country: US (occurrence: US)
  Receive Date: 20180903
  Receipt Date: 20180903
  Transmission Date: 20181010
  Serious: No
  Sender: FDA-Public Use
  Company Number: US-PFIZER INC-2018345969

PATIENT
  Age: 65 Year
  Sex: Male
  Weight: 80.73 kg

DRUGS (2)
  1. LISINOPRIL + HIDROCLOROTIAZIDA [Concomitant]
     Active Substance: HYDROCHLOROTHIAZIDE\LISINOPRIL
     Indication: HYPERTENSION
     Dosage: UNK [LISINOPRIL: 20MG; HYDROCHLOROTHIAZIDE: 12.5MG]
  2. CHANTIX [Suspect]
     Active Substance: VARENICLINE TARTRATE
     Dosage: 1 MG, 2X/DAY
     Dates: start: 20180818

REACTIONS (7)
  - Drug dose omission [Unknown]
  - Hyperaesthesia [Unknown]
  - Tachyphrenia [Unknown]
  - Dry mouth [Unknown]
  - Dyspnoea [Unknown]
  - Feeling abnormal [Unknown]
  - Fear [Unknown]

NARRATIVE: CASE EVENT DATE: 20180826
